FAERS Safety Report 8175858-3 (Version None)
Quarter: 2012Q1

REPORT INFORMATION
  Report Type: 
  Country: None (occurrence: None)
  Receive Date: 20120227
  Receipt Date: 20120227
  Transmission Date: 20120608
  Serious: No
  Sender: FDA-Public Use
  Company Number: None

PATIENT
  Age: 82 Year
  Sex: Male
  Weight: 68.0396 kg

DRUGS (2)
  1. CLONAZEPAM [Suspect]
     Dosage: TWO TIMES DAILY
  2. CLONAZEPAM [Suspect]
     Dosage: TWO TIMES DAILY

REACTIONS (3)
  - PRODUCT SUBSTITUTION ISSUE [None]
  - DRY MOUTH [None]
  - INSOMNIA [None]
